FAERS Safety Report 17389518 (Version 1)
Quarter: 2020Q1

REPORT INFORMATION
  Report Type: Spontaneous
  Country: US (occurrence: US)
  Receive Date: 20200207
  Receipt Date: 20200207
  Transmission Date: 20200409
  Serious: No
  Sender: FDA-Public Use
  Company Number: US-BAUSCH-BL-2020-003560

PATIENT
  Age: 71 Year
  Sex: Female

DRUGS (2)
  1. BESIVANCE [Suspect]
     Active Substance: BESIFLOXACIN
     Indication: VIRAL INFECTION
  2. BESIVANCE [Suspect]
     Active Substance: BESIFLOXACIN
     Indication: BACTERIAL INFECTION
     Route: 047
     Dates: start: 20200124, end: 20200130

REACTIONS (4)
  - Swelling of eyelid [Not Recovered/Not Resolved]
  - Symptom recurrence [Not Recovered/Not Resolved]
  - Eye pruritus [Not Recovered/Not Resolved]
  - Lacrimation increased [Not Recovered/Not Resolved]

NARRATIVE: CASE EVENT DATE: 20200130
